FAERS Safety Report 7110682-1 (Version None)
Quarter: 2010Q4

REPORT INFORMATION
  Report Type: 
  Country: None (occurrence: None)
  Receive Date: 20101118
  Receipt Date: 20101110
  Transmission Date: 20110411
  Serious: Yes (Hospitalization)
  Sender: FDA-Public Use
  Company Number: A0798507A

PATIENT
  Sex: Male
  Weight: 90.9 kg

DRUGS (9)
  1. AVANDIA [Suspect]
     Indication: TYPE 2 DIABETES MELLITUS
     Dosage: 4MG TWICE PER DAY
     Route: 048
     Dates: start: 20040101, end: 20060101
  2. AVANDAMET [Suspect]
     Indication: DIABETES MELLITUS
     Route: 048
     Dates: start: 20051206, end: 20060101
  3. BENICAR [Concomitant]
  4. GLIPIZIDE [Concomitant]
  5. HYDROCHLOROTHIAZIDE [Concomitant]
  6. LYRICA [Concomitant]
  7. AMBIEN [Concomitant]
  8. NIFEDIPINE [Concomitant]
  9. METFORMIN [Concomitant]

REACTIONS (18)
  - ANAEMIA [None]
  - AORTIC ANEURYSM [None]
  - AORTIC ARTERIOSCLEROSIS [None]
  - ASBESTOSIS [None]
  - CARDIAC FAILURE CONGESTIVE [None]
  - CARDIOMEGALY [None]
  - CORONARY ARTERY DISEASE [None]
  - GANGRENE [None]
  - MITRAL VALVE INCOMPETENCE [None]
  - MYOCARDIAL INFARCTION [None]
  - PNEUMONIA [None]
  - PULMONARY CONGESTION [None]
  - PULMONARY FIBROSIS [None]
  - RENAL FAILURE CHRONIC [None]
  - RENAL IMPAIRMENT [None]
  - SYNCOPE [None]
  - TOXIC ENCEPHALOPATHY [None]
  - TRICUSPID VALVE INCOMPETENCE [None]
